FAERS Safety Report 6385689-2 (Version None)
Quarter: 2009Q4

REPORT INFORMATION
  Report Type: 
  Country: None (occurrence: None)
  Receive Date: 20091002
  Receipt Date: 20081020
  Transmission Date: 20100525
  Serious: No
  Sender: FDA-Public Use
  Company Number: US-ASTRAZENECA-2008UW23139

PATIENT
  Age: 66 Year
  Sex: Female

DRUGS (8)
  1. ARIMIDEX [Suspect]
     Route: 048
     Dates: start: 20060301
  2. POTASSIUM CITRATE [Concomitant]
  3. RAMIPRIL [Concomitant]
  4. SYNTHROID [Concomitant]
  5. LIPITOR [Concomitant]
  6. ASPIRIN [Concomitant]
  7. ASCORBIC ACID [Concomitant]
  8. GLUCOSAMINE C + CHONDORITIN [Concomitant]

REACTIONS (4)
  - ARTHRITIS [None]
  - MUSCULAR WEAKNESS [None]
  - NEPHROLITHIASIS [None]
  - VAGINAL LESION [None]
